FAERS Safety Report 8836916 (Version 1)
Quarter: 2012Q4

REPORT INFORMATION
  Report Type: 
  Country: US (occurrence: US)
  Receive Date: 20121012
  Receipt Date: 20121012
  Transmission Date: 20130627
  Serious: Yes (Other)
  Sender: FDA-Public Use
  Company Number: US-BAYER-2012-104789

PATIENT
  Age: 52 Year
  Sex: Male
  Weight: 95.24 kg

DRUGS (2)
  1. ASP SEVERE SINUS CONGESTION ALLERGY + COUGH LG [Suspect]
     Indication: PRODUCT USED FOR UNKNOWN INDICATION
     Dosage: 2 TAB, used only one time
     Route: 048
     Dates: start: 20120930, end: 20120930
  2. VITAMINS [Concomitant]

REACTIONS (1)
  - Condition aggravated [None]
